FAERS Safety Report 26122459 (Version 1)
Quarter: 2025Q4

REPORT INFORMATION
  Report Type: Spontaneous
  Country: EU (occurrence: EU)
  Receive Date: 20251204
  Receipt Date: 20251204
  Transmission Date: 20260117
  Serious: Yes (Death, Life-Threatening, Hospitalization)
  Sender: SANDOZ
  Company Number: EU-002147023-NVSC2024GR047167

PATIENT
  Age: 79 Year
  Sex: Female
  Weight: 93 kg

DRUGS (11)
  1. ALPELISIB [Suspect]
     Active Substance: ALPELISIB
     Indication: Breast cancer
     Dosage: 300 MG, QD (4 WEEKS, (28 DAYS))
     Route: 048
     Dates: start: 20230831, end: 20240116
  2. ALPELISIB [Suspect]
     Active Substance: ALPELISIB
     Dosage: UNK (DRUG WITHDRAWN ON CYCLE 6 DAY 1)
     Route: 065
     Dates: start: 20240124
  3. FULVESTRANT [Suspect]
     Active Substance: FULVESTRANT
     Indication: Breast cancer
     Dosage: 500 MG (EVERY TWO WEEKS ON DAYS 1 AND  15 DURING CYCLE 1 AND EVERY 4 WEEKS  BEGINNING FROM CYCLE 2,
     Route: 030
     Dates: start: 20230831, end: 20231220
  4. AMLODIPINE [Concomitant]
     Active Substance: AMLODIPINE BESYLATE
     Indication: Hypertension
     Dosage: 5 MG, QD
     Route: 065
     Dates: start: 20051015
  5. ATORVASTATIN [Concomitant]
     Active Substance: ATORVASTATIN
     Indication: Dyslipidaemia
     Dosage: 10 MG
     Route: 065
     Dates: start: 20051015
  6. CALCIUM CARBONATE [Concomitant]
     Active Substance: CALCIUM CARBONATE
     Indication: Metastasis
     Dosage: 1000 MG, QD
     Route: 065
     Dates: start: 20210915
  7. DENOSUMAB [Concomitant]
     Active Substance: DENOSUMAB
     Indication: Metastasis
     Dosage: 120 MG, QMO
     Route: 065
     Dates: start: 20211115
  8. METFORMIN [Concomitant]
     Active Substance: METFORMIN HYDROCHLORIDE
     Indication: Hyperglycaemia
     Dosage: 1000 MG, QD
     Route: 065
     Dates: start: 20230906, end: 20240117
  9. NEBIVOLOL [Concomitant]
     Active Substance: NEBIVOLOL
     Indication: Hypertension
     Dosage: 2.5 MG, QD
     Route: 065
     Dates: start: 20210915
  10. OLMESARTAN [Concomitant]
     Active Substance: OLMESARTAN
     Indication: Hypertension
     Dosage: 20 MG, QD
     Route: 065
     Dates: start: 20051015
  11. VILDAGLIPTIN [Concomitant]
     Active Substance: VILDAGLIPTIN
     Indication: Hyperglycaemia
     Dosage: 50 MG, QD
     Route: 065
     Dates: start: 20231025

REACTIONS (5)
  - General physical health deterioration [Fatal]
  - Oedema peripheral [Fatal]
  - Breast cancer [Fatal]
  - Pulmonary oedema [Fatal]
  - Acute kidney injury [Recovered/Resolved]

NARRATIVE: CASE EVENT DATE: 20230920
